FAERS Safety Report 5124645-9 (Version None)
Quarter: 2006Q4

REPORT INFORMATION
  Report Type: 
  Country: None (occurrence: None)
  Receive Date: 20061006
  Receipt Date: 20061006
  Transmission Date: 20070319
  Serious: Yes (Other)
  Sender: FDA-Public Use
  Company Number: None

PATIENT
  Age: 24 Year
  Sex: Female
  Weight: 58.0604 kg

DRUGS (2)
  1. EFFEXOR XR [Suspect]
     Indication: ANXIETY
     Dosage: RANGED WHILE WEARNING 1XDAY TO EVERY OTH PO
     Route: 048
     Dates: start: 20030101, end: 20060926
  2. EFFEXOR XR [Suspect]
     Indication: DEPRESSION
     Dosage: RANGED WHILE WEARNING 1XDAY TO EVERY OTH PO
     Route: 048
     Dates: start: 20030101, end: 20060926

REACTIONS (18)
  - AMNESIA [None]
  - BLEPHAROSPASM [None]
  - CHILLS [None]
  - DIARRHOEA [None]
  - DRUG DOSE OMISSION [None]
  - DRUG WITHDRAWAL SYNDROME [None]
  - FEELING ABNORMAL [None]
  - FEELING HOT AND COLD [None]
  - HOT FLUSH [None]
  - INSOMNIA [None]
  - MOOD SWINGS [None]
  - NAUSEA [None]
  - NIGHT SWEATS [None]
  - PARAESTHESIA [None]
  - SUICIDE ATTEMPT [None]
  - TREMOR [None]
  - VERTIGO [None]
  - VOMITING [None]
